FAERS Safety Report 12382717 (Version 1)
Quarter: 2016Q2

REPORT INFORMATION
  Report Type: Report from Study
  Country: US (occurrence: US)
  Receive Date: 20160518
  Receipt Date: 20160518
  Transmission Date: 20160815
  Serious: Yes (Disabling, Other)
  Sender: FDA-Public Use
  Company Number: US-PURDUE-USA-2015-0127605

PATIENT
  Age: 73 Year
  Sex: Female

DRUGS (3)
  1. OXYCONTIN [Suspect]
     Active Substance: OXYCODONE HYDROCHLORIDE
     Indication: RADICULOPATHY
  2. OXYCONTIN [Suspect]
     Active Substance: OXYCODONE HYDROCHLORIDE
     Indication: INTERVERTEBRAL DISC DEGENERATION
     Dosage: 80 MG, Q8H
     Route: 048
     Dates: end: 20151113
  3. OXYCONTIN [Suspect]
     Active Substance: OXYCODONE HYDROCHLORIDE
     Indication: NEUROPATHY PERIPHERAL
     Dosage: UNK
     Route: 048
     Dates: start: 200304

REACTIONS (15)
  - Rib fracture [Unknown]
  - Tooth fracture [Unknown]
  - Fluid retention [Unknown]
  - Respiratory tract infection [Unknown]
  - Bronchitis [Unknown]
  - Fall [Unknown]
  - Drug withdrawal syndrome [Unknown]
  - Mobility decreased [Unknown]
  - Tremor [Unknown]
  - Dental caries [Unknown]
  - Activities of daily living impaired [Unknown]
  - Disability [Unknown]
  - Vomiting [Unknown]
  - Complex regional pain syndrome [Not Recovered/Not Resolved]
  - Asthenia [Unknown]

NARRATIVE: CASE EVENT DATE: 20151117
